FAERS Safety Report 7029019-1 (Version None)
Quarter: 2010Q4

REPORT INFORMATION
  Report Type: 
  Country: None (occurrence: None)
  Receive Date: 20101005
  Receipt Date: 20100929
  Transmission Date: 20110411
  Serious: Yes (Hospitalization)
  Sender: FDA-Public Use
  Company Number: A0884605A

PATIENT
  Sex: Male
  Weight: 8.7 kg

DRUGS (3)
  1. AMOXICILLIN [Suspect]
     Indication: MENINGITIS
     Route: 065
  2. CEFACLOR [Suspect]
     Indication: MENINGITIS
     Route: 065
  3. NOVALGINA [Concomitant]
     Dosage: 2.5ML THREE TIMES PER DAY
     Dates: start: 20100923

REACTIONS (6)
  - BAND NEUTROPHIL COUNT INCREASED [None]
  - DECREASED APPETITE [None]
  - DRUG INEFFECTIVE [None]
  - INFECTION [None]
  - PYREXIA [None]
  - WHITE BLOOD CELL COUNT INCREASED [None]
